FAERS Safety Report 7897623-4 (Version None)
Quarter: 2011Q4

REPORT INFORMATION
  Report Type: 
  Country: None (occurrence: None)
  Receive Date: 20111107
  Receipt Date: 20111101
  Transmission Date: 20120403
  Serious: Yes (Life-Threatening, Other)
  Sender: FDA-Public Use
  Company Number: GB-PFIZER INC-2011267767

PATIENT
  Age: 65 Year
  Sex: Female

DRUGS (6)
  1. ATRACURIUM [Suspect]
     Indication: INDUCTION OF ANAESTHESIA
     Dosage: 40 MG, UNK
     Route: 042
     Dates: start: 20111020, end: 20111020
  2. CITALOPRAM [Concomitant]
  3. ONDANSETRON HCL [Suspect]
     Indication: INDUCTION OF ANAESTHESIA
     Dosage: 4 MG, UNK
     Route: 042
     Dates: start: 20111020, end: 20111020
  4. SIMVASTATIN [Concomitant]
  5. FENTANYL [Suspect]
     Indication: INDUCTION OF ANAESTHESIA
     Dosage: 100 UG, UNK
     Route: 042
     Dates: start: 20111020, end: 20111020
  6. PROPOFOL [Suspect]
     Indication: INDUCTION OF ANAESTHESIA
     Dosage: 200 MG, UNK
     Route: 042
     Dates: start: 20111020, end: 20111020

REACTIONS (6)
  - ANAPHYLACTIC SHOCK [None]
  - WHEEZING [None]
  - CARDIAC OUTPUT DECREASED [None]
  - PULSELESS ELECTRICAL ACTIVITY [None]
  - SKIN REACTION [None]
  - OXYGEN SATURATION DECREASED [None]
